FAERS Safety Report 16761560 (Version 1)
Quarter: 2019Q3

REPORT INFORMATION
  Report Type: Spontaneous
  Country: BR (occurrence: BR)
  Receive Date: 20190830
  Receipt Date: 20190830
  Transmission Date: 20191005
  Serious: Yes (Death)
  Sender: FDA-Public Use
  Company Number: PHHY2019BR202285

PATIENT
  Age: 73 Year
  Sex: Male
  Weight: 68.3 kg

DRUGS (11)
  1. TYLEX [Concomitant]
     Indication: PAIN
     Dosage: UNK UNK, Q6H
     Route: 048
     Dates: start: 20190409
  2. OMEGA 3 [Concomitant]
     Active Substance: OMEGA-3 FATTY ACIDS
     Indication: CARDIOVASCULAR EVENT PROPHYLAXIS
     Dosage: UNK UNK, QD
     Route: 048
     Dates: start: 20180223
  3. ZOMETA [Suspect]
     Active Substance: ZOLEDRONIC ACID
     Indication: METASTASES TO BONE
     Dosage: UNK (EACH 28 DAYS)
     Route: 042
     Dates: start: 20190422
  4. ETOPOSIDE. [Suspect]
     Active Substance: ETOPOSIDE
     Indication: LUNG NEOPLASM MALIGNANT
     Dosage: UNK (EACH 21 DAYS)
     Route: 042
     Dates: start: 20190422
  5. CARBOPLATIN. [Suspect]
     Active Substance: CARBOPLATIN
     Indication: LUNG NEOPLASM MALIGNANT
     Dosage: UNK (EACH 21 DAYS)
     Route: 042
     Dates: start: 20190422
  6. DIPYRONE [Concomitant]
     Active Substance: DIPYRONE
     Indication: PAIN
     Dosage: 500 MG, UNK
     Route: 048
     Dates: start: 20190209
  7. MINERAL OIL. [Concomitant]
     Active Substance: MINERAL OIL
     Indication: CONSTIPATION
     Dosage: 10 ML, QD
     Route: 048
     Dates: start: 2018
  8. EXPEC [Concomitant]
     Indication: COUGH
     Dosage: 5 ML, Q8H
     Route: 048
     Dates: start: 20190409
  9. CLONAZEPAM. [Concomitant]
     Active Substance: CLONAZEPAM
     Indication: INSOMNIA
     Dosage: 0.5 MG, QD
     Route: 048
     Dates: start: 20180420
  10. ENTRESTO [Concomitant]
     Active Substance: SACUBITRIL\VALSARTAN
     Indication: ARRHYTHMIA
     Dosage: UNK
     Route: 048
     Dates: start: 2011
  11. BISOPROLOL [Concomitant]
     Active Substance: BISOPROLOL
     Indication: ARRHYTHMIA
     Dosage: UNK
     Route: 048
     Dates: start: 2011

REACTIONS (1)
  - Death [Fatal]

NARRATIVE: CASE EVENT DATE: 20190429
